FAERS Safety Report 5372337-3 (Version None)
Quarter: 2007Q2

REPORT INFORMATION
  Report Type: 
  Country: None (occurrence: None)
  Receive Date: 20070620
  Receipt Date: 20070330
  Transmission Date: 20071010
  Serious: No
  Sender: FDA-Public Use
  Company Number: 2007RL000150

PATIENT
  Age: 66 Year
  Sex: Male
  Weight: 111.1313 kg

DRUGS (8)
  1. OMACOR [Suspect]
     Indication: BLOOD TRIGLYCERIDES INCREASED
     Dosage: 2 GM;BID;PO
     Route: 048
     Dates: start: 20070329
  2. NIACIN [Suspect]
     Indication: DRUG USE FOR UNKNOWN INDICATION
     Dosage: ;BID;PO
     Route: 048
  3. LIPITOR [Concomitant]
  4. MAGNESIUM SULFATE [Concomitant]
  5. POTASSIUM CHLORIDE [Concomitant]
  6. ASPIRIN [Concomitant]
  7. DIABETES MEDICATION [Concomitant]
  8. BLOOD PRESSURE MEDICATION [Concomitant]

REACTIONS (2)
  - DRUG INTERACTION [None]
  - PRURITUS [None]
